FAERS Safety Report 6221309-5 (Version None)
Quarter: 2009Q2

REPORT INFORMATION
  Report Type: 
  Country: None (occurrence: None)
  Receive Date: 20090608
  Receipt Date: 20090527
  Transmission Date: 20091009
  Serious: Yes (Hospitalization)
  Sender: FDA-Public Use
  Company Number: 006616

PATIENT
  Age: 75 Year
  Sex: Male

DRUGS (6)
  1. PLETAL [Suspect]
     Indication: ARTERIAL OCCLUSIVE DISEASE
     Dosage: 100 MG, QD ORAL
     Route: 048
     Dates: start: 20090114, end: 20090423
  2. PLETAL [Suspect]
     Indication: CEREBRAL INFARCTION
     Dosage: 100 MG, QD ORAL
     Route: 048
     Dates: start: 20090114, end: 20090423
  3. BAYASPIRIN (ACETYLSALICYLIC ACID) TABLET [Concomitant]
  4. PANALDINE (TICLOPIDINE HYDROCHLORIDE) UNKNOWN [Concomitant]
  5. LENDORMIN (BROTIZOLAM) TABLET [Concomitant]
  6. GASTER (FAMOTIDINE) UNKNOWN [Concomitant]

REACTIONS (1)
  - TACHYCARDIA PAROXYSMAL [None]
